FAERS Safety Report 5416941-2 (Version None)
Quarter: 2007Q3

REPORT INFORMATION
  Report Type: 
  Country: None (occurrence: None)
  Receive Date: 20070816
  Receipt Date: 20070809
  Transmission Date: 20080115
  Serious: Yes (Other)
  Sender: FDA-Public Use
  Company Number: HQWYE520810AUG07

PATIENT
  Sex: Female

DRUGS (3)
  1. RAPAMUNE [Suspect]
     Indication: RENAL TRANSPLANT
     Route: 048
  2. PREDNISONE TAB [Concomitant]
     Indication: RENAL TRANSPLANT
     Dosage: UNSPECIFIED
  3. MYCOPHENOLATE MOFETIL [Concomitant]
     Indication: RENAL TRANSPLANT
     Dosage: UNSPECIFIED

REACTIONS (1)
  - ALVEOLAR PROTEINOSIS [None]
